FAERS Safety Report 8255655-0 (Version None)
Quarter: 2012Q2

REPORT INFORMATION
  Report Type: 
  Country: None (occurrence: None)
  Receive Date: 20120403
  Receipt Date: 20120327
  Transmission Date: 20120825
  Serious: Yes (Hospitalization)
  Sender: FDA-Public Use
  Company Number: PHHY2012DE018268

PATIENT
  Sex: Female

DRUGS (3)
  1. GILENYA [Suspect]
     Indication: MULTIPLE SCLEROSIS
     Dosage: 0.5 MG, QD
     Route: 048
     Dates: start: 20111018
  2. BACLOFEN [Concomitant]
     Indication: MUSCLE SPASTICITY
     Dosage: 50 MG, DAILY
     Route: 048
     Dates: start: 20020101
  3. LEVOTHYROXINE SODIUM [Concomitant]
     Dosage: 50 UG, DAILY
     Route: 048
     Dates: start: 19950101

REACTIONS (12)
  - GRAND MAL CONVULSION [None]
  - LETHARGY [None]
  - SLEEP DISORDER [None]
  - CONFUSIONAL STATE [None]
  - LOSS OF CONSCIOUSNESS [None]
  - AMNESIA [None]
  - DEPRESSION [None]
  - HEADACHE [None]
  - PARTIAL SEIZURES [None]
  - MUSCLE RIGIDITY [None]
  - SOMNOLENCE [None]
  - IRRITABILITY [None]
